FAERS Safety Report 7283592 (Version 2)
Quarter: 2013Q2

REPORT INFORMATION
  Report Type: Spontaneous
  Country: US (occurrence: US)
  Receive Date: 20100218
  Receipt Date: 20130529
  Transmission Date: 20140414
  Serious: Yes (Other)
  Sender: FDA-Public Use
  Company Number: US-JNJFOC-20100205786

PATIENT
  Age: 12 Year
  Sex: Male

DRUGS (6)
  1. REMICADE [Suspect]
     Indication: CROHN^S DISEASE
     Dosage: STARTED 4 YEARS AGO
     Route: 042
  2. REMICADE [Suspect]
     Indication: CROHN^S DISEASE
     Dosage: 2ND DOSE AFTER RESTARTED
     Route: 042
     Dates: start: 20100125
  3. PENTASA [Concomitant]
  4. ENTOCORT [Concomitant]
  5. BENADRYL [Concomitant]
     Indication: PREMEDICATION
  6. SOLU-MEDROL [Concomitant]
     Indication: PREMEDICATION

REACTIONS (5)
  - Fistula [Unknown]
  - Back pain [Recovered/Resolved]
  - Rash erythematous [Recovered/Resolved]
  - Dyspnoea [Recovered/Resolved]
  - Infusion related reaction [Recovered/Resolved]
